FAERS Safety Report 12563442 (Version 1)
Quarter: 2016Q3

REPORT INFORMATION
  Report Type: Report from Study
  Country: CO (occurrence: CO)
  Receive Date: 20160715
  Receipt Date: 20160715
  Transmission Date: 20161109
  Serious: Yes (Other)
  Sender: FDA-Public Use
  Company Number: CO-REGENERON PHARMACEUTICALS, INC.-2016-19305

PATIENT

DRUGS (1)
  1. EYLEA [Suspect]
     Active Substance: AFLIBERCEPT
     Indication: AGE-RELATED MACULAR DEGENERATION
     Dosage: THE PATIENT RECEIVED SEVERAL DOSES OF EYLIA IN THE LEFT EYE (OS)
     Dates: start: 20140515

REACTIONS (2)
  - Eye haemorrhage [Not Recovered/Not Resolved]
  - Blindness unilateral [Not Recovered/Not Resolved]
